FAERS Safety Report 10191929 (Version 2)
Quarter: 2014Q2

REPORT INFORMATION
  Report Type: Spontaneous
  Country: US (occurrence: US)
  Receive Date: 20140523
  Receipt Date: 20140612
  Transmission Date: 20141212
  Serious: No
  Sender: FDA-Public Use
  Company Number: US-PFIZER INC-2014140414

PATIENT
  Age: 75 Year
  Sex: Female

DRUGS (15)
  1. XELJANZ [Suspect]
     Indication: RHEUMATOID ARTHRITIS
     Dosage: 5 MG, 2X/DAY
     Route: 048
     Dates: start: 20140416
  2. ZYRTEC [Concomitant]
     Dosage: 10 MG
     Route: 048
  3. CRESTOR [Concomitant]
     Dosage: 10 MG 1 TABLET, DAILY
     Route: 048
  4. VITAMIN E [Concomitant]
     Dosage: 500 MG, UNK
     Route: 048
  5. VITAMIN C [Concomitant]
     Dosage: 500 MG
     Route: 048
  6. CALCIUM + VIT D [Concomitant]
     Dosage: UNK
     Route: 048
  7. VOLTAREN [Concomitant]
     Dosage: 50 MG 1 TABLET
     Route: 048
  8. MECLIZINE HYDROCHLORIDE [Concomitant]
     Dosage: 25 MG 1 TABLET
     Route: 048
  9. PATANASE [Concomitant]
     Dosage: 0.6 %,
     Route: 045
  10. VENTOLIN HFA [Concomitant]
     Dosage: UNK
     Route: 055
  11. FOLIC ACID [Concomitant]
     Dosage: 1 MG, 1X/DAY
     Route: 048
     Dates: start: 20120814
  12. METHOTREXATE [Concomitant]
     Dosage: 2.5 MG 1 TABLET, (TAKE 5 TABLETS EVERY WEEK)
     Route: 048
     Dates: start: 20130320
  13. NEXIUM [Concomitant]
     Dosage: 40 MG 1 CAPSULE, 1X/DAY
     Dates: start: 20140213
  14. STELARA [Concomitant]
  15. CIMZIA [Concomitant]

REACTIONS (1)
  - Dizziness [Recovered/Resolved]
